FAERS Safety Report 7778330-5 (Version None)
Quarter: 2011Q3

REPORT INFORMATION
  Report Type: 
  Country: None (occurrence: None)
  Receive Date: 20110926
  Receipt Date: 20110912
  Transmission Date: 20111222
  Serious: No
  Sender: FDA-Public Use
  Company Number: US-BAYER-2011-088281

PATIENT
  Age: 20 Year
  Sex: Female

DRUGS (1)
  1. MIRENA [Suspect]
     Indication: CONTRACEPTION
     Dosage: 20 MCG/24HR, CONT
     Dates: start: 20110818, end: 20110818

REACTIONS (3)
  - PROCEDURAL PAIN [None]
  - DEVICE DIFFICULT TO USE [None]
  - POST PROCEDURAL DISCOMFORT [None]
